FAERS Safety Report 6048613-8 (Version None)
Quarter: 2009Q1

REPORT INFORMATION
  Report Type: 
  Country: None (occurrence: None)
  Receive Date: 20090121
  Receipt Date: 20090121
  Transmission Date: 20090719
  Serious: Yes (Other)
  Sender: FDA-Public Use
  Company Number: None

PATIENT
  Age: 75 Year
  Sex: Female
  Weight: 68.0396 kg

DRUGS (1)
  1. METHYLPREDNISOLONE [Suspect]
     Indication: RALES
     Dosage: DAILY DOSE PER DAY ON PAK TAKE AS DIRECTED PO
     Route: 048
     Dates: start: 20081110, end: 20081116

REACTIONS (6)
  - BLOOD PRESSURE FLUCTUATION [None]
  - DIZZINESS [None]
  - FEELING ABNORMAL [None]
  - HEART RATE INCREASED [None]
  - PALLOR [None]
  - SYNCOPE [None]
